FAERS Safety Report 25789862 (Version 1)
Quarter: 2025Q3

REPORT INFORMATION
  Report Type: Spontaneous
  Country: GB (occurrence: GB)
  Receive Date: 20250911
  Receipt Date: 20250911
  Transmission Date: 20251021
  Serious: Yes (Other)
  Sender: HETERO
  Company Number: None

PATIENT
  Age: 68 Year
  Sex: Male
  Weight: 70 kg

DRUGS (2)
  1. ATORVASTATIN [Suspect]
     Active Substance: ATORVASTATIN
     Indication: Product used for unknown indication
     Route: 065
  2. ATENOLOL [Concomitant]
     Active Substance: ATENOLOL
     Indication: Migraine
     Route: 065
     Dates: start: 20140101

REACTIONS (5)
  - Musculoskeletal stiffness [Recovering/Resolving]
  - Medication error [Unknown]
  - Joint swelling [Recovering/Resolving]
  - Fatigue [Unknown]
  - Muscle fatigue [Recovering/Resolving]
